FAERS Safety Report 9184292 (Version 1)
Quarter: 2012Q4

REPORT INFORMATION
  Report Type: 
  Country: US (occurrence: US)
  Receive Date: 20121031
  Receipt Date: 20121031
  Transmission Date: 20130627
  Serious: Yes (Other)
  Sender: FDA-Public Use
  Company Number: US-ELI_LILLY_AND_COMPANY-US201210006953

PATIENT
  Sex: Female

DRUGS (2)
  1. HUMATROPE [Suspect]
     Indication: PITUITARY TUMOUR
     Dosage: 0.4 mg, qd
     Dates: start: 2004, end: 2006
  2. HUMATROPE [Suspect]
     Dosage: 0.4 mg, qd
     Dates: start: 2012

REACTIONS (1)
  - Pituitary tumour recurrent [Unknown]
